FAERS Safety Report 6321606-9 (Version None)
Quarter: 2009Q3

REPORT INFORMATION
  Report Type: 
  Country: None (occurrence: None)
  Receive Date: 20090819
  Receipt Date: 20090805
  Transmission Date: 20100115
  Serious: Yes (Hospitalization)
  Sender: FDA-Public Use
  Company Number: 2009SP002089

PATIENT
  Age: 72 Year
  Sex: Male
  Weight: 60.6 kg

DRUGS (8)
  1. ESZOPICLONE [Suspect]
     Indication: INSOMNIA
     Dosage: ; ORAL
     Route: 048
     Dates: start: 20090722
  2. DOGMATYL [Concomitant]
  3. OMEPRAL /00661201/ [Concomitant]
  4. HARNAL [Concomitant]
  5. DEPAS [Concomitant]
  6. PAXIL [Concomitant]
  7. CERCINE [Concomitant]
  8. LENDORMIN [Concomitant]

REACTIONS (4)
  - AFFECTIVE DISORDER [None]
  - FATIGUE [None]
  - FEELING JITTERY [None]
  - INSOMNIA [None]
